FAERS Safety Report 5255119-2 (Version None)
Quarter: 2007Q1

REPORT INFORMATION
  Report Type: 
  Country: None (occurrence: None)
  Receive Date: 20070228
  Receipt Date: 20070216
  Transmission Date: 20070707
  Serious: Yes (Hospitalization)
  Sender: FDA-Public Use
  Company Number: TPA2007A00319

PATIENT
  Age: 82 Year
  Sex: Female
  Weight: 89.3586 kg

DRUGS (7)
  1. ACTOS [Suspect]
     Indication: DIABETES MELLITUS NON-INSULIN-DEPENDENT
     Dosage: SEE IMAGE
     Route: 048
     Dates: start: 20040101
  2. LILLY HUMULIN NPH INSULIN (INSULIN INJECTION, ISOPHANE) (INJECTION) [Concomitant]
  3. ZOCOR [Concomitant]
  4. FOSAMAX [Concomitant]
  5. SYNTHROOID (LEVOTHYROXINE SODIUM) [Concomitant]
  6. CENTRUM SILVER (ASCORBIC ACID, TOCOPHEROL ACETATE, RETINOL, ZINC, CALC [Concomitant]
  7. OSCAL WITH D (COLECALCIFEROL, CALCIUM) [Concomitant]

REACTIONS (7)
  - BLINDNESS UNILATERAL [None]
  - CLAVICLE FRACTURE [None]
  - DIZZINESS [None]
  - FALL [None]
  - HAEMATOMA [None]
  - RIB FRACTURE [None]
  - VISUAL ACUITY REDUCED [None]
